FAERS Safety Report 9197272 (Version 2)
Quarter: 2013Q2

REPORT INFORMATION
  Report Type: Spontaneous
  Country: US (occurrence: US)
  Receive Date: 20130328
  Receipt Date: 20130607
  Transmission Date: 20140414
  Serious: Yes (Hospitalization)
  Sender: FDA-Public Use
  Company Number: US-BAYER-2013-035938

PATIENT
  Age: 49 Year
  Sex: Female
  Weight: 75.28 kg

DRUGS (9)
  1. YASMIN [Suspect]
     Indication: ENDOMETRIOSIS
     Dosage: UNK
     Dates: start: 20030708, end: 200710
  2. YASMIN [Suspect]
     Indication: ENDOMETRIOSIS
     Dosage: UNK
     Dates: start: 201203
  3. CIPRO [Concomitant]
     Indication: SINUSITIS
  4. STEROIDS NOS [Concomitant]
  5. CALAN SLOW RELEASE [Concomitant]
     Dosage: 120 MG, QD HS
  6. CELEXA [Concomitant]
     Dosage: 40 MG, UNK
  7. TOPROL-XL [Concomitant]
     Dosage: 100 MG, HS
  8. RESTORIL [Concomitant]
     Dosage: 30 MG, 2 TABLET HS
  9. MICROGESTIN [Concomitant]
     Indication: MENSTRUATION IRREGULAR

REACTIONS (9)
  - Deep vein thrombosis [Recovered/Resolved]
  - Pelvic venous thrombosis [Recovered/Resolved]
  - Thrombophlebitis superficial [Recovered/Resolved]
  - Deep vein thrombosis [Recovered/Resolved]
  - Pain [Recovered/Resolved]
  - Injury [Recovered/Resolved]
  - Erythema [Recovered/Resolved]
  - Oedema peripheral [Recovered/Resolved]
  - Pain [None]
